FAERS Safety Report 24378231 (Version 1)
Quarter: 2024Q3

REPORT INFORMATION
  Report Type: Spontaneous
  Country: FI (occurrence: FI)
  Receive Date: 20240930
  Receipt Date: 20240930
  Transmission Date: 20241016
  Serious: Yes (Hospitalization)
  Sender: AMGEN
  Company Number: FI-AMGEN-FINSP2024189585

PATIENT
  Age: 17 Year
  Sex: Male

DRUGS (3)
  1. BLINCYTO [Suspect]
     Active Substance: BLINATUMOMAB
     Indication: Product used for unknown indication
     Dosage: UNK, CONTINUING INFUSION
     Route: 065
     Dates: start: 20210519, end: 202105
  2. BLINCYTO [Suspect]
     Active Substance: BLINATUMOMAB
     Dosage: UNK, CONTINUING (DOSE WAS INCREASED BY 3)
     Route: 065
     Dates: start: 20210526
  3. DEXAMETHASONE [Concomitant]
     Active Substance: DEXAMETHASONE
     Dosage: UNK
     Dates: start: 20210519

REACTIONS (5)
  - Cholelithiasis [Unknown]
  - Cholecystitis [Unknown]
  - Oral pain [Unknown]
  - Neck pain [Unknown]
  - Abdominal pain [Unknown]

NARRATIVE: CASE EVENT DATE: 20210501
